FAERS Safety Report 13891454 (Version 4)
Quarter: 2017Q3

REPORT INFORMATION
  Report Type: Report from Study
  Country: None (occurrence: US)
  Receive Date: 20170822
  Receipt Date: 20170831
  Transmission Date: 20171127
  Serious: Yes (Death, Other)
  Sender: FDA-Public Use
  Company Number: US-ABBVIE-17P-163-2079284-00

PATIENT
  Age: 76 Year
  Sex: Male
  Weight: 65.83 kg

DRUGS (3)
  1. VENCLEXTA [Suspect]
     Active Substance: VENETOCLAX
     Indication: BLASTIC PLASMACYTOID DENDRITIC CELL NEOPLASIA
     Route: 048
     Dates: start: 2017, end: 2017
  2. VENCLEXTA [Suspect]
     Active Substance: VENETOCLAX
     Route: 048
     Dates: end: 201708
  3. CYTARABINE. [Concomitant]
     Active Substance: CYTARABINE
     Indication: BLASTIC PLASMACYTOID DENDRITIC CELL NEOPLASIA
     Dosage: 5 DAYS PER MONTH
     Route: 065
     Dates: start: 2017, end: 2017

REACTIONS (4)
  - Death [Fatal]
  - Fatigue [Fatal]
  - Confusional state [Fatal]
  - Asthenia [Fatal]

NARRATIVE: CASE EVENT DATE: 2017
